FAERS Safety Report 9805339 (Version 1)
Quarter: 2014Q1

REPORT INFORMATION
  Report Type: Spontaneous
  Country: DE (occurrence: None)
  Receive Date: 20140106
  Receipt Date: 20140106
  Transmission Date: 20141002
  Serious: Yes (Hospitalization, Other)
  Sender: FDA-Public Use
  Company Number: AUR-APL-2013-10875

PATIENT
  Age: 24 Year
  Sex: Female

DRUGS (4)
  1. OLANZAPINE (OLANZAPINE) [Suspect]
     Indication: SCHIZOPHRENIA, PARANOID TYPE
     Route: 048
  2. LORAZEPAM (LORAZEPAM) [Suspect]
     Indication: SCHIZOPHRENIA, PARANOID TYPE
  3. DOPEGYT (METHYLDPA) [Concomitant]
  4. AMOXICILLIN [Concomitant]

REACTIONS (3)
  - Psychotic disorder [None]
  - Condition aggravated [None]
  - Maternal exposure during pregnancy [None]
